FAERS Safety Report 7093913-6 (Version None)
Quarter: 2010Q4

REPORT INFORMATION
  Report Type: 
  Country: None (occurrence: None)
  Receive Date: 20101110
  Receipt Date: 20101105
  Transmission Date: 20110411
  Serious: Yes (Hospitalization)
  Sender: FDA-Public Use
  Company Number: US-PFIZER INC-2010142018

PATIENT
  Sex: Female
  Weight: 69.388 kg

DRUGS (9)
  1. ESTRING [Suspect]
     Indication: ATROPHIC VULVOVAGINITIS
     Dosage: 2 MG, EVERY 3 MONTHS
     Route: 067
     Dates: start: 20091225, end: 20100101
  2. ALBUTEROL [Concomitant]
     Indication: ASTHMA
     Dosage: UNK
     Route: 055
  3. MONTELUKAST SODIUM [Concomitant]
     Indication: ASTHMA
     Dosage: 10 MG, 1X/DAY
  4. MONTELUKAST SODIUM [Concomitant]
     Indication: CHRONIC OBSTRUCTIVE PULMONARY DISEASE
  5. ZYRTEC [Concomitant]
     Indication: HYPERSENSITIVITY
     Dosage: 10 MG, 1X/DAY
     Route: 048
  6. FLEXERIL [Concomitant]
     Indication: ARTHRITIS
     Dosage: UNK
     Route: 048
  7. TYLENOL [Concomitant]
     Indication: ARTHRITIS
     Dosage: UNK
     Route: 048
  8. MELATONIN [Concomitant]
     Indication: SLEEP DISORDER
     Dosage: 3 MG, 1X/DAY
  9. ATIVAN [Concomitant]
     Indication: SLEEP DISORDER
     Dosage: 1 MG, 1X/DAY
     Route: 048

REACTIONS (1)
  - DIVERTICULITIS [None]
